FAERS Safety Report 7288856-9 (Version None)
Quarter: 2011Q1

REPORT INFORMATION
  Report Type: 
  Country: None (occurrence: None)
  Receive Date: 20110211
  Receipt Date: 20110209
  Transmission Date: 20110831
  Serious: Yes (Life-Threatening, Hospitalization)
  Sender: FDA-Public Use
  Company Number: DE-B.I. PHARMACEUTICALS,INC./RIDGEFIELD-2011-DE-00834DE

PATIENT
  Sex: Male
  Weight: 80 kg

DRUGS (3)
  1. FLUVASTATIN [Concomitant]
     Dosage: 40 MG
  2. VIRAMUNE [Suspect]
     Indication: HIV INFECTION
     Dosage: 400 MG
  3. TRUVADA [Concomitant]
     Indication: HIV INFECTION
     Dosage: 200 MG EMTRICITABIN + 245 MG TENOFOVIRDISOPROXIL

REACTIONS (4)
  - HYPONATRAEMIA [None]
  - BLOOD SODIUM DECREASED [None]
  - CONFUSIONAL STATE [None]
  - DIZZINESS [None]
